FAERS Safety Report 8595699-2 (Version None)
Quarter: 2012Q3

REPORT INFORMATION
  Report Type: 
  Country: None (occurrence: None)
  Receive Date: 20120815
  Receipt Date: 20120807
  Transmission Date: 20120928
  Serious: Yes (Other)
  Sender: FDA-Public Use
  Company Number: CA-ROCHE-1021538

PATIENT
  Sex: Female
  Weight: 64 kg

DRUGS (2)
  1. AVASTIN [Suspect]
     Indication: GLIOBLASTOMA
     Route: 042
     Dates: start: 20111110, end: 20120605
  2. SYNTHROID [Concomitant]

REACTIONS (8)
  - DISEASE PROGRESSION [None]
  - MUSCULAR WEAKNESS [None]
  - VOMITING [None]
  - VISION BLURRED [None]
  - NAUSEA [None]
  - GENERAL PHYSICAL HEALTH DETERIORATION [None]
  - PLATELET COUNT DECREASED [None]
  - DIZZINESS [None]
